FAERS Safety Report 9854843 (Version 1)
Quarter: 2014Q1

REPORT INFORMATION
  Report Type: Spontaneous
  Country: US (occurrence: US)
  Receive Date: 20140130
  Receipt Date: 20140130
  Transmission Date: 20141002
  Serious: Yes (Other)
  Sender: FDA-Public Use
  Company Number: US-AMGEN-USASP2014005703

PATIENT
  Age: 59 Year
  Sex: Male

DRUGS (5)
  1. ENBREL [Suspect]
     Indication: PSORIATIC ARTHROPATHY
     Dosage: 50 MG, QWK
     Route: 065
     Dates: start: 2005
  2. ENBREL [Suspect]
     Indication: PSORIASIS
  3. HUMIRA [Suspect]
     Indication: PRODUCT USED FOR UNKNOWN INDICATION
     Dosage: UNK
     Route: 065
  4. SIMPONI [Suspect]
     Indication: PRODUCT USED FOR UNKNOWN INDICATION
     Dosage: UNK (FIRST TOOK IT ONCE MONTHLY AND THEN TWICE MONTHLY)
     Route: 065
     Dates: start: 2012, end: 2012
  5. REMICAIDE [Suspect]
     Indication: PRODUCT USED FOR UNKNOWN INDICATION
     Dosage: UNK
     Route: 065
     Dates: start: 2012, end: 2013

REACTIONS (9)
  - Lupus-like syndrome [Recovered/Resolved]
  - Anger [Recovered/Resolved]
  - Negative thoughts [Recovered/Resolved]
  - Abasia [Unknown]
  - Lyme disease [Not Recovered/Not Resolved]
  - Pain in extremity [Recovered/Resolved]
  - Mobility decreased [Recovered/Resolved]
  - Pruritus [Not Recovered/Not Resolved]
  - Drug ineffective [Recovered/Resolved]
